FAERS Safety Report 8462153-8 (Version None)
Quarter: 2012Q2

REPORT INFORMATION
  Report Type: 
  Country: None (occurrence: None)
  Receive Date: 20120625
  Receipt Date: 20120611
  Transmission Date: 20120825
  Serious: Yes (Other)
  Sender: FDA-Public Use
  Company Number: GB-MYLANLABS-2012S1011921

PATIENT
  Age: 28 Year
  Sex: Male
  Weight: 63.5 kg

DRUGS (4)
  1. DOXYCYCLINE [Suspect]
     Route: 048
     Dates: start: 20120529, end: 20120529
  2. DOXYCYCLINE [Suspect]
     Indication: ACNE
     Dates: start: 20120426
  3. BECLOMETHASONE DIPROPIONATE [Concomitant]
     Indication: PRODUCT USED FOR UNKNOWN INDICATION
     Dates: start: 20120118, end: 20120308
  4. ERYTHROMYCIN [Concomitant]
     Indication: PRODUCT USED FOR UNKNOWN INDICATION
     Dates: start: 20120426

REACTIONS (3)
  - LIBIDO DECREASED [None]
  - ERECTILE DYSFUNCTION [None]
  - SEXUAL DYSFUNCTION [None]
